FAERS Safety Report 21348396 (Version 1)
Quarter: 2022Q3

REPORT INFORMATION
  Report Type: Report from Study
  Country: TW (occurrence: TW)
  Receive Date: 20220919
  Receipt Date: 20220919
  Transmission Date: 20221026
  Serious: Yes (Hospitalization, Other)
  Sender: FDA-Public Use
  Company Number: TW-TAKEDA-2022TUS064590

PATIENT
  Sex: Male

DRUGS (16)
  1. IDURSULFASE [Suspect]
     Active Substance: IDURSULFASE
     Indication: Mucopolysaccharidosis II
     Dosage: UNK
     Route: 042
     Dates: start: 20070329
  2. IDURSULFASE [Suspect]
     Active Substance: IDURSULFASE
     Dosage: 0.5 MILLIGRAM/KILOGRAM, 1/WEEK
     Route: 042
     Dates: start: 20220728
  3. CAPTOPRIL [Concomitant]
     Active Substance: CAPTOPRIL
     Indication: Cardiovascular disorder
     Dosage: UNK
     Route: 048
     Dates: start: 20070331, end: 20071220
  4. CAPTOPRIL [Concomitant]
     Active Substance: CAPTOPRIL
     Dosage: UNK
     Route: 048
     Dates: start: 20090331, end: 20091220
  5. COZAAR [Concomitant]
     Active Substance: LOSARTAN POTASSIUM
     Indication: Cardiovascular disorder
     Dosage: UNK
     Route: 048
     Dates: start: 20070726
  6. TRICHLORMETHIAZIDE [Concomitant]
     Active Substance: TRICHLORMETHIAZIDE
     Indication: Cardiovascular disorder
     Dosage: UNK
     Route: 048
     Dates: start: 20071222, end: 20081030
  7. TRICHLORMETHIAZIDE [Concomitant]
     Active Substance: TRICHLORMETHIAZIDE
     Dosage: UNK
     Route: 048
     Dates: start: 20081030, end: 20091220
  8. ISMO [Concomitant]
     Active Substance: ISOSORBIDE MONONITRATE
     Indication: Cardiovascular disorder
     Dosage: UNK
     Route: 048
     Dates: start: 20081030
  9. COXINE [Concomitant]
     Indication: Aortic valve incompetence
     Dosage: UNK
     Route: 048
     Dates: start: 20081030
  10. COXINE [Concomitant]
     Indication: Mitral valve incompetence
  11. LASIX [Concomitant]
     Active Substance: FUROSEMIDE
     Indication: Aortic valve incompetence
     Dosage: UNK
     Route: 048
     Dates: start: 20090312
  12. LASIX [Concomitant]
     Active Substance: FUROSEMIDE
     Indication: Mitral valve incompetence
  13. ASPIRIN [Concomitant]
     Active Substance: ASPIRIN
     Indication: Cerebrovascular accident
     Dosage: UNK
     Route: 048
     Dates: start: 20150911
  14. CRESTOR [Concomitant]
     Active Substance: ROSUVASTATIN CALCIUM
     Indication: Hyperlipidaemia
     Dosage: UNK
     Route: 048
     Dates: start: 20150911
  15. Paramol [Concomitant]
     Indication: Pain
     Dosage: UNK
     Route: 048
     Dates: start: 20160520
  16. Ceflour [Concomitant]
     Indication: Hydronephrosis
     Dosage: UNK
     Route: 048
     Dates: start: 20220505

REACTIONS (2)
  - Nephrolithiasis [Unknown]
  - Hydronephrosis [Unknown]
